FAERS Safety Report 21885592 (Version 1)
Quarter: 2023Q1

REPORT INFORMATION
  Report Type: Spontaneous
  Country: RO (occurrence: RO)
  Receive Date: 20230119
  Receipt Date: 20230119
  Transmission Date: 20230418
  Serious: Yes (Death, Other)
  Sender: FDA-Public Use
  Company Number: RO-ELI_LILLY_AND_COMPANY-RO202301008225

PATIENT
  Age: 67 Year
  Sex: Male

DRUGS (5)
  1. RAMUCIRUMAB [Suspect]
     Active Substance: RAMUCIRUMAB
     Indication: Gastric neoplasm
     Dosage: 8 MG, CYCLICAL
     Route: 065
     Dates: start: 202103, end: 202109
  2. RAMUCIRUMAB [Suspect]
     Active Substance: RAMUCIRUMAB
     Dosage: 8 MG, CYCLICAL
     Route: 065
     Dates: start: 202109
  3. PACLITAXEL [Suspect]
     Active Substance: PACLITAXEL
     Indication: Product used for unknown indication
     Dosage: 80 MG/M2, CYCLICAL
     Route: 065
  4. ACETAMINOPHEN [Concomitant]
     Active Substance: ACETAMINOPHEN
     Indication: Product used for unknown indication
  5. DEXAMETHASONE [Concomitant]
     Active Substance: DEXAMETHASONE
     Indication: Product used for unknown indication

REACTIONS (13)
  - Death [Fatal]
  - Malignant neoplasm progression [Unknown]
  - Neuropathy peripheral [Unknown]
  - Anaemia [Unknown]
  - Weight decreased [Unknown]
  - Red blood cell sedimentation rate increased [Unknown]
  - Alopecia [Unknown]
  - Gastroenteritis bacillus [Unknown]
  - Myalgia [Unknown]
  - Ascites [Unknown]
  - Leukopenia [Unknown]
  - Asthenia [Unknown]
  - Neutropenia [Unknown]

NARRATIVE: CASE EVENT DATE: 20210101
